FAERS Safety Report 9149929 (Version 3)
Quarter: 2013Q3

REPORT INFORMATION
  Report Type: Spontaneous
  Country: DE (occurrence: DE)
  Receive Date: 20130308
  Receipt Date: 20130722
  Transmission Date: 20140515
  Serious: Yes (Death, Life-Threatening, Hospitalization)
  Sender: FDA-Public Use
  Company Number: DE-JNJFOC-20130300986

PATIENT
  Age: 84 Year
  Sex: Male

DRUGS (7)
  1. XARELTO [Suspect]
     Indication: PULMONARY ARTERIAL HYPERTENSION
     Route: 048
     Dates: start: 201301
  2. XARELTO [Suspect]
     Indication: PULMONARY EMBOLISM
     Route: 048
     Dates: start: 201301
  3. FERRO SANOL [Concomitant]
     Route: 065
  4. METOPROLOL [Concomitant]
     Indication: TACHYCARDIA
     Route: 065
  5. PANTOPRAZOLE [Concomitant]
     Route: 048
  6. TAMSULOSIN [Concomitant]
     Route: 048
  7. FERRO SANOL [Concomitant]
     Indication: IRON DEFICIENCY
     Route: 048

REACTIONS (3)
  - Haemorrhage intracranial [Fatal]
  - Intraventricular haemorrhage [Fatal]
  - Coma [Unknown]
